FAERS Safety Report 18095462 (Version 2)
Quarter: 2020Q3

REPORT INFORMATION
  Report Type: Spontaneous
  Country: MK (occurrence: MK)
  Receive Date: 20200730
  Receipt Date: 20200817
  Transmission Date: 20201103
  Serious: Yes (Hospitalization, Other)
  Sender: FDA-Public Use
  Company Number: MK-JNJFOC-20200739567

PATIENT
  Age: 62 Year
  Sex: Male

DRUGS (1)
  1. XARELTO [Suspect]
     Active Substance: RIVAROXABAN
     Indication: ATRIAL FIBRILLATION
     Dosage: 15 MG, QD
     Route: 048

REACTIONS (8)
  - Dizziness [Unknown]
  - Gait disturbance [Unknown]
  - Prescribed underdose [Unknown]
  - Embolic stroke [Unknown]
  - Hemiparesis [Unknown]
  - Dysphagia [Unknown]
  - Discomfort [Unknown]
  - Dysphonia [Unknown]
